FAERS Safety Report 4697203-8 (Version None)
Quarter: 2005Q2

REPORT INFORMATION
  Report Type: 
  Country: None (occurrence: None)
  Receive Date: 20050621
  Receipt Date: 20050621
  Transmission Date: 20051028
  Serious: Yes (Other)
  Sender: FDA-Public Use
  Company Number: None

PATIENT
  Age: 1 Month
  Sex: Male
  Weight: 3.6288 kg

DRUGS (1)
  1. REGLAN [Suspect]
     Indication: GASTROOESOPHAGEAL REFLUX DISEASE
     Dosage: .5 ML    Q 4 HOURS   ORAL
     Route: 048
     Dates: start: 20050110, end: 20050220

REACTIONS (7)
  - ABDOMINAL PAIN [None]
  - ABNORMAL BEHAVIOUR [None]
  - DRUG INEFFECTIVE [None]
  - MUSCULOSKELETAL STIFFNESS [None]
  - NEONATAL DISORDER [None]
  - PHARMACEUTICAL PRODUCT COMPLAINT [None]
  - STARING [None]
